FAERS Safety Report 20246929 (Version 1)
Quarter: 2021Q4

REPORT INFORMATION
  Report Type: Spontaneous
  Country: US (occurrence: US)
  Receive Date: 20211229
  Receipt Date: 20211229
  Transmission Date: 20220303
  Serious: Yes (Hospitalization)
  Sender: FDA-Public Use
  Company Number: US-ELI_LILLY_AND_COMPANY-US202112010860

PATIENT
  Age: 43 Year
  Sex: Female

DRUGS (2)
  1. ETESEVIMAB [Suspect]
     Active Substance: ETESEVIMAB
     Indication: COVID-19
     Dosage: UNK UNK, SINGLE
     Route: 042
     Dates: start: 20211210, end: 20211210
  2. BAMLANIVIMAB [Suspect]
     Active Substance: BAMLANIVIMAB
     Indication: COVID-19
     Dosage: UNK MG, SINGLE
     Route: 042
     Dates: start: 20211210, end: 20211210

REACTIONS (2)
  - Acute respiratory failure [Unknown]
  - COVID-19 pneumonia [Unknown]

NARRATIVE: CASE EVENT DATE: 20211212
